FAERS Safety Report 19036586 (Version 1)
Quarter: 2021Q1

REPORT INFORMATION
  Report Type: Spontaneous
  Country: US (occurrence: US)
  Receive Date: 20210322
  Receipt Date: 20210322
  Transmission Date: 20210420
  Serious: Yes (Hospitalization, Other)
  Sender: FDA-Public Use
  Company Number: US-HETERO-HET2021US00654

PATIENT
  Age: 82 Year
  Sex: Female

DRUGS (1)
  1. LINEZOLID. [Suspect]
     Active Substance: LINEZOLID
     Indication: ARTHRITIS INFECTIVE
     Dosage: UNKNOWN
     Route: 065

REACTIONS (5)
  - Pancytopenia [Recovering/Resolving]
  - Toxicity to various agents [Unknown]
  - Drug-induced liver injury [Unknown]
  - Hepatitis [Recovered/Resolved]
  - Lactic acidosis [Recovered/Resolved]
